FAERS Safety Report 4491133-2 (Version None)
Quarter: 2004Q3

REPORT INFORMATION
  Report Type: 
  Country: None (occurrence: None)
  Receive Date: 20040927
  Receipt Date: 20040729
  Transmission Date: 20050211
  Serious: No
  Sender: FDA-Public Use
  Company Number: USA040774060

PATIENT
  Age: 52 Year
  Sex: Male
  Weight: 68 kg

DRUGS (9)
  1. STRATTERA [Suspect]
     Indication: ATTENTION DEFICIT/HYPERACTIVITY DISORDER
     Dosage: 10 MG/ 1 DAY
     Dates: start: 20040708
  2. CELLCEPT [Concomitant]
  3. PROGRAF [Concomitant]
  4. LEXAPRO [Concomitant]
  5. SEROQUEL [Concomitant]
  6. NORVASC [Concomitant]
  7. TENORMIN (ATENOLOL EG) [Concomitant]
  8. PRILOSEC [Concomitant]
  9. WELLBUTRIN [Concomitant]

REACTIONS (2)
  - BLOOD CREATININE INCREASED [None]
  - BLOOD UREA INCREASED [None]
